FAERS Safety Report 6305327-4 (Version None)
Quarter: 2009Q3

REPORT INFORMATION
  Report Type: 
  Country: None (occurrence: None)
  Receive Date: 20090811
  Receipt Date: 20090806
  Transmission Date: 20100115
  Serious: Yes (Death)
  Sender: FDA-Public Use
  Company Number: GB-ABBOTT-09P-167-0572745-00

PATIENT
  Sex: Male
  Weight: 106 kg

DRUGS (7)
  1. HUMIRA [Suspect]
     Indication: RHEUMATOID ARTHRITIS
     Route: 058
     Dates: start: 20060906, end: 20061015
  2. LEFLUNOMIDE [Concomitant]
     Indication: DRUG USE FOR UNKNOWN INDICATION
     Dosage: BASELINE MEDICATION 17 OCT 2006
     Dates: start: 20061017
  3. ASPIRIN [Concomitant]
     Indication: DRUG USE FOR UNKNOWN INDICATION
     Dosage: BASELINE MEDICATION 17 OCT 2006
     Dates: start: 20061017
  4. FELODIPINE [Concomitant]
     Indication: DRUG USE FOR UNKNOWN INDICATION
     Dosage: BASELINE MEDICATION 17 OCT 2006
     Dates: start: 20061017
  5. INSULIN [Concomitant]
     Indication: DRUG USE FOR UNKNOWN INDICATION
     Dosage: BASELINE MEDICATION 17 OCT 2006
     Dates: start: 20061017
  6. METFORMIN [Concomitant]
     Indication: DRUG USE FOR UNKNOWN INDICATION
     Dosage: BASELINE MEDICATION 17 OCT 2006
     Dates: start: 20061017
  7. VALSARTAN [Concomitant]
     Indication: DRUG USE FOR UNKNOWN INDICATION
     Dosage: BASELINE MEDICATION 17 OCT 2006
     Dates: start: 20061017

REACTIONS (1)
  - CEREBROVASCULAR ACCIDENT [None]
